FAERS Safety Report 6378681-5 (Version None)
Quarter: 2009Q3

REPORT INFORMATION
  Report Type: 
  Country: None (occurrence: None)
  Receive Date: 20090928
  Receipt Date: 20090917
  Transmission Date: 20100115
  Serious: Yes (Other)
  Sender: FDA-Public Use
  Company Number: US-ROCHE-657585

PATIENT
  Sex: Male

DRUGS (3)
  1. PEG-INTERFERON A-2A (RO 25-8310) [Suspect]
     Indication: HEPATITIS C
     Dosage: FORM: PRE-FILLED SYRINGE
     Route: 065
     Dates: start: 20081003
  2. RIBAVIRIN (NON-ROCHE) [Suspect]
     Indication: HEPATITIS C
     Dosage: DIVIDED DOSES.
     Route: 065
     Dates: start: 20081003
  3. PROCRIT [Suspect]
     Indication: DRUG USE FOR UNKNOWN INDICATION
     Route: 065
     Dates: end: 20090827

REACTIONS (8)
  - AMNESIA [None]
  - DYSPNOEA [None]
  - HAEMOGLOBIN DECREASED [None]
  - HEADACHE [None]
  - PRURITUS [None]
  - THROMBOSIS [None]
  - TREMOR [None]
  - VASODILATATION [None]
